FAERS Safety Report 5309862-7 (Version None)
Quarter: 2007Q2

REPORT INFORMATION
  Report Type: 
  Country: None (occurrence: None)
  Receive Date: 20070427
  Receipt Date: 20070416
  Transmission Date: 20071010
  Serious: Yes (Other)
  Sender: FDA-Public Use
  Company Number: JP-ROCHE-489057

PATIENT
  Age: 10 Year
  Sex: Male
  Weight: 50 kg

DRUGS (8)
  1. TAMIFLU [Suspect]
     Indication: INFLUENZA
     Dosage: FORM: DRY SYRUP 3%.
     Route: 048
     Dates: start: 20070315, end: 20070317
  2. TOMIRON [Suspect]
     Dosage: GENERIC REPORTED AS CEFTERAM PIVOXIL. DOSE FORM:ORAL FORMULATION.
     Route: 048
  3. THIATON [Suspect]
     Dosage: DOSE FORM: ORAL FORMULATION (NOS).
     Route: 048
  4. BIOFERMIN [Suspect]
     Route: 048
  5. PRIMPERAN INJ [Suspect]
     Route: 048
  6. CALONAL [Suspect]
     Dosage: GENERIC REPORTED AS ACETAMINOPHEN.
     Route: 065
  7. HUSTAZOL [Suspect]
     Dosage: GENERIC REPORTED AS CLOPERASTINE FENDIZOATE.
     Route: 048
     Dates: start: 20070317
  8. KIMO TAB [Suspect]
     Route: 048

REACTIONS (1)
  - TORTICOLLIS [None]
